FAERS Safety Report 19605812 (Version 3)
Quarter: 2025Q2

REPORT INFORMATION
  Report Type: Report from Study
  Country: US (occurrence: US)
  Receive Date: 20210723
  Receipt Date: 20250422
  Transmission Date: 20250716
  Serious: Yes (Other)
  Sender: ROCHE
  Company Number: US-ROCHE-2875251

PATIENT
  Age: 65 Year
  Sex: Female

DRUGS (8)
  1. XOLAIR [Suspect]
     Active Substance: OMALIZUMAB
     Indication: Asthma
     Route: 058
     Dates: start: 20191105
  2. XOLAIR [Suspect]
     Active Substance: OMALIZUMAB
  3. ESTRADIOL [Concomitant]
     Active Substance: ESTRADIOL
  4. METOPROLOL [Concomitant]
     Active Substance: METOPROLOL
  5. CETIRIZINE HYDROCHLORIDE [Concomitant]
     Active Substance: CETIRIZINE HYDROCHLORIDE
  6. ACRIVASTINE [Concomitant]
     Active Substance: ACRIVASTINE
  7. PANTOPRAZOLE [Concomitant]
     Active Substance: PANTOPRAZOLE
  8. HYDROXYCHLOROQUINE DIPHOSPHATE [Concomitant]
     Active Substance: HYDROXYCHLOROQUINE DIPHOSPHATE

REACTIONS (6)
  - Anaphylactic reaction [Unknown]
  - Respiratory distress [Unknown]
  - Dizziness [Unknown]
  - Dysphagia [Unknown]
  - Pulmonary hypertension [Unknown]
  - Menopausal symptoms [Unknown]
